FAERS Safety Report 16977362 (Version 1)
Quarter: 2019Q4

REPORT INFORMATION
  Report Type: Spontaneous
  Country: CA (occurrence: CA)
  Receive Date: 20191031
  Receipt Date: 20191031
  Transmission Date: 20200122
  Serious: Yes (Other)
  Sender: FDA-Public Use
  Company Number: CA-BOEHRINGERINGELHEIM-2018-BI-005580

PATIENT
  Age: 76 Year
  Sex: Male

DRUGS (14)
  1. FERROUS FUMARATE [Concomitant]
     Active Substance: FERROUS FUMARATE
  2. INSULIN [Concomitant]
     Active Substance: INSULIN NOS
  3. COAL TAR;ZINC OXIDE [Concomitant]
  4. SYMBICORT [Concomitant]
     Active Substance: BUDESONIDE\FORMOTEROL FUMARATE DIHYDRATE
  5. PREVACID [Concomitant]
     Active Substance: LANSOPRAZOLE
  6. FLOMAX [Suspect]
     Active Substance: TAMSULOSIN HYDROCHLORIDE
     Indication: PRODUCT USED FOR UNKNOWN INDICATION
     Dosage: UNK UNK, UNK
     Route: 065
  7. NEORAL [Suspect]
     Active Substance: CYCLOSPORINE
     Indication: PRODUCT USED FOR UNKNOWN INDICATION
     Dosage: UNK UNK, UNK
     Route: 065
  8. ASA [Concomitant]
     Active Substance: ASPIRIN
  9. ACITRETIN. [Concomitant]
     Active Substance: ACITRETIN
  10. COLCHICINE;PROBENECID [Concomitant]
  11. FUROSEMIDE;POTASSIUM CHLORIDE [Concomitant]
  12. ARANESP [Concomitant]
     Active Substance: DARBEPOETIN ALFA
  13. METHOTREXATE. [Concomitant]
     Active Substance: METHOTREXATE
  14. SENOKOT [Concomitant]
     Active Substance: SENNOSIDES

REACTIONS (2)
  - Nervousness [Unknown]
  - Blood pressure decreased [Unknown]
